FAERS Safety Report 6279258-2 (Version None)
Quarter: 2009Q3

REPORT INFORMATION
  Report Type: 
  Country: None (occurrence: None)
  Receive Date: 20090723
  Receipt Date: 20090722
  Transmission Date: 20100115
  Serious: Yes (Hospitalization, Other)
  Sender: FDA-Public Use
  Company Number: US-B.I. PHARMACEUTICALS,INC./RIDGEFIELD-2008-BP-17249BP

PATIENT
  Sex: Female

DRUGS (15)
  1. SPIRIVA [Suspect]
     Indication: CHRONIC OBSTRUCTIVE PULMONARY DISEASE
     Dosage: 18 MCG
     Route: 055
     Dates: start: 20040101
  2. SPIRIVA [Suspect]
     Indication: DYSPNOEA
  3. SPIRIVA [Suspect]
     Indication: RESPIRATION ABNORMAL
  4. FORADIL [Concomitant]
     Indication: CHRONIC OBSTRUCTIVE PULMONARY DISEASE
  5. XOPENEX [Concomitant]
     Indication: CHRONIC OBSTRUCTIVE PULMONARY DISEASE
  6. VERAPAMIL [Concomitant]
     Indication: HYPERTENSION
     Route: 048
     Dates: start: 20040101
  7. COZAAR [Concomitant]
     Indication: HYPERTENSION
     Route: 048
     Dates: start: 20070101
  8. MAGNESIUM [Concomitant]
     Indication: PROPHYLAXIS
  9. POTASSIUM CHLORIDE [Concomitant]
     Indication: PROPHYLAXIS
  10. CRESTOR [Concomitant]
     Indication: BLOOD CHOLESTEROL INCREASED
  11. CALCITRIOL [Concomitant]
     Indication: PROPHYLAXIS
  12. VITAMIN D [Concomitant]
     Indication: PROPHYLAXIS
  13. HYDROCHLOROTHIAZIDE [Concomitant]
     Indication: FLUID RETENTION
  14. BUDESONIDE [Concomitant]
     Indication: LUNG DISORDER
     Route: 055
  15. PERFOROMIST [Concomitant]
     Indication: LUNG DISORDER
     Route: 055

REACTIONS (10)
  - ANXIETY [None]
  - CRYING [None]
  - DYSPNOEA [None]
  - EYE DISORDER [None]
  - GLAUCOMA [None]
  - INTRAOCULAR PRESSURE TEST [None]
  - LUNG NEOPLASM MALIGNANT [None]
  - NASOPHARYNGITIS [None]
  - NODULE [None]
  - SENILE DEMENTIA [None]
